FAERS Safety Report 7454749-7 (Version None)
Quarter: 2011Q2

REPORT INFORMATION
  Report Type: 
  Country: None (occurrence: None)
  Receive Date: 20110503
  Receipt Date: 20110420
  Transmission Date: 20111010
  Serious: Yes (Hospitalization)
  Sender: FDA-Public Use
  Company Number: US-CELGENEUS-163-21660-11042573

PATIENT
  Sex: Female
  Weight: 92.9 kg

DRUGS (14)
  1. OXYCODONE HCL [Concomitant]
     Indication: PAIN
     Dosage: 5 MILLIGRAM
     Route: 048
     Dates: start: 20110223
  2. TYLENOL EXTRA STRENGTH [Concomitant]
     Dosage: 2 TABLETS
     Route: 048
  3. ALLOPURINOL [Concomitant]
     Dosage: 300 MILLIGRAM
     Route: 048
  4. ABRAXANE [Suspect]
     Indication: NON-SMALL CELL LUNG CANCER
     Dosage: 260 MILLIGRAM/SQ. METER
     Route: 065
     Dates: start: 20110302
  5. PEGFILGRASTIM [Concomitant]
     Indication: NEUTROPENIA
     Dosage: 6MG/0.6ML
     Route: 058
     Dates: start: 20110302
  6. DEXAMETHASONE [Concomitant]
     Dosage: 4 MILLIGRAM
     Route: 048
     Dates: start: 20110302
  7. SITAGLIPTIN PHOSPHATE [Concomitant]
     Dosage: 100 MILLIGRAM
     Route: 048
     Dates: start: 20100907
  8. PROCHLORPERAZINE MALEATE [Concomitant]
     Indication: NAUSEA
     Dosage: 10 MILLIGRAM
     Route: 048
     Dates: start: 20110302
  9. POTASSIUM CITRATE [Concomitant]
     Dosage: 10 MILLIEQUIVALENTS
     Route: 048
  10. MAGNESIUM OXIDE [Concomitant]
     Dosage: 400 MILLIGRAM
     Route: 048
  11. IBUPROFEN [Concomitant]
     Dosage: 800 MILLIGRAM
     Route: 048
  12. ABRAXANE [Suspect]
     Dosage: 260 MILLIGRAM/SQ. METER
     Route: 065
     Dates: start: 20110322, end: 20110411
  13. CARBOPLATIN [Suspect]
     Indication: NON-SMALL CELL LUNG CANCER
     Route: 051
     Dates: start: 20110302
  14. INDAPAMIDE [Concomitant]
     Dosage: 1.25 MILLIGRAM
     Route: 048

REACTIONS (1)
  - ESCHERICHIA BACTERAEMIA [None]
